FAERS Safety Report 16296331 (Version 1)
Quarter: 2019Q2

REPORT INFORMATION
  Report Type: Report from Study
  Country: US (occurrence: US)
  Receive Date: 20190510
  Receipt Date: 20190510
  Transmission Date: 20190711
  Serious: Yes (Death, Other)
  Sender: FDA-Public Use
  Company Number: US-GILEAD-2019-0406887

PATIENT
  Age: 71 Year
  Sex: Female

DRUGS (12)
  1. IBUPROFEN. [Concomitant]
     Active Substance: IBUPROFEN
  2. FAMOTIDINE. [Concomitant]
     Active Substance: FAMOTIDINE
  3. HALDOL [Concomitant]
     Active Substance: HALOPERIDOL
  4. CALCIUM [Concomitant]
     Active Substance: CALCIUM
  5. DIGOXIN. [Concomitant]
     Active Substance: DIGOXIN
  6. FLUPHENAZINE [Concomitant]
     Active Substance: FLUPHENAZINE
  7. LEVOTHYROXIN [Concomitant]
     Active Substance: LEVOTHYROXINE
  8. FERROUS SULFATE. [Concomitant]
     Active Substance: FERROUS SULFATE
  9. RISPERDAL [Concomitant]
     Active Substance: RISPERIDONE
  10. SILDENAFIL. [Suspect]
     Active Substance: SILDENAFIL
     Indication: PULMONARY HYPERTENSION
     Route: 065
  11. LASIX [Concomitant]
     Active Substance: FUROSEMIDE
  12. AMBRISENTAN [Suspect]
     Active Substance: AMBRISENTAN
     Indication: PULMONARY HYPERTENSION
     Dosage: 5 MG, QD
     Route: 065

REACTIONS (1)
  - Death [Fatal]

NARRATIVE: CASE EVENT DATE: 20190411
